FAERS Safety Report 19349589 (Version 1)
Quarter: 2021Q2

REPORT INFORMATION
  Report Type: Spontaneous
  Country: JP (occurrence: JP)
  Receive Date: 20210531
  Receipt Date: 20210531
  Transmission Date: 20210717
  Serious: Yes (Death, Other)
  Sender: FDA-Public Use
  Company Number: JP-TAKEDA-2021TJP026776

PATIENT
  Age: 8 Decade
  Sex: Male

DRUGS (4)
  1. AGRYLIN [Suspect]
     Active Substance: ANAGRELIDE HYDROCHLORIDE
     Indication: ESSENTIAL THROMBOCYTHAEMIA
     Dosage: 3 MILLIGRAM
     Route: 048
     Dates: start: 202010
  2. AGRYLIN [Suspect]
     Active Substance: ANAGRELIDE HYDROCHLORIDE
     Dosage: 10 MILLIGRAM
     Route: 048
     Dates: end: 202104
  3. AGRYLIN [Suspect]
     Active Substance: ANAGRELIDE HYDROCHLORIDE
     Dosage: 4 MILLIGRAM
     Route: 048
  4. AGRYLIN [Suspect]
     Active Substance: ANAGRELIDE HYDROCHLORIDE
     Dosage: 8 MILLIGRAM
     Route: 048

REACTIONS (3)
  - Death [Fatal]
  - Oedema [Recovered/Resolved]
  - Diarrhoea [Recovered/Resolved]

NARRATIVE: CASE EVENT DATE: 202101
